FAERS Safety Report 8402344-5 (Version None)
Quarter: 2012Q2

REPORT INFORMATION
  Report Type: 
  Country: None (occurrence: None)
  Receive Date: 20120529
  Receipt Date: 20120514
  Transmission Date: 20120825
  Serious: Yes (Life-Threatening, Hospitalization)
  Sender: FDA-Public Use
  Company Number: DSA_57479_2012

PATIENT
  Age: 60 Year
  Sex: Female

DRUGS (2)
  1. METRONIDAZOLE [Suspect]
     Indication: PSEUDOMEMBRANOUS COLITIS
     Dosage: (500 MG  1X/8 HOURS ORAL)
     Route: 048
  2. CIPROFLOXACIN HYDROCHLORIDE [Suspect]
     Indication: DIARRHOEA
     Dosage: (500 MG 1X/12 HOURS ORAL)
     Route: 048

REACTIONS (7)
  - HYPOTENSION [None]
  - WEIGHT DECREASED [None]
  - COLITIS ISCHAEMIC [None]
  - PERITONITIS [None]
  - LARGE INTESTINE PERFORATION [None]
  - PSEUDOMEMBRANOUS COLITIS [None]
  - TREATMENT FAILURE [None]
